FAERS Safety Report 10541470 (Version 18)
Quarter: 2016Q2

REPORT INFORMATION
  Report Type: Spontaneous
  Country: US (occurrence: US)
  Receive Date: 20141024
  Receipt Date: 20160607
  Transmission Date: 20160815
  Serious: Yes (Hospitalization, Other)
  Sender: FDA-Public Use
  Company Number: US-GLAXOSMITHKLINE-A1072475A

PATIENT
  Age: 71 Year
  Sex: Female

DRUGS (22)
  1. FLOLAN [Suspect]
     Active Substance: EPOPROSTENOL SODIUM
     Dosage: UNK
     Dates: start: 20100410
  2. FLOLAN [Suspect]
     Active Substance: EPOPROSTENOL SODIUM
     Dosage: UNK
  3. FLOLAN [Suspect]
     Active Substance: EPOPROSTENOL SODIUM
     Dosage: 40.76 NG/KG/MIN, CO
     Dates: start: 20100409
  4. ADEMPAS [Suspect]
     Active Substance: RIOCIGUAT
     Indication: PRODUCT USED FOR UNKNOWN INDICATION
     Dosage: UNK
  5. ADEMPAS [Suspect]
     Active Substance: RIOCIGUAT
     Dosage: UNK UNK, U
  6. WARFARIN [Concomitant]
     Active Substance: WARFARIN
  7. ADCIRCA [Concomitant]
     Active Substance: TADALAFIL
  8. FLOLAN [Suspect]
     Active Substance: EPOPROSTENOL SODIUM
     Indication: PULMONARY ARTERIAL HYPERTENSION
     Dosage: 40.15 NG/KG/MIN, 45,000 NG/ML, 74 ML/DAY, 1.5 MG
     Route: 042
     Dates: start: 20100330
  9. FLOLAN [Suspect]
     Active Substance: EPOPROSTENOL SODIUM
     Dosage: 47.55 NG/KG/MIN, CO
  10. FLOLAN [Suspect]
     Active Substance: EPOPROSTENOL SODIUM
     Dosage: 40.15 NG/KG/MIN
  11. FLOLAN [Suspect]
     Active Substance: EPOPROSTENOL SODIUM
     Dosage: 39.6 NG/KG/MIN, CO
  12. NITRIC OXIDE. [Concomitant]
     Active Substance: NITRIC OXIDE
     Indication: PRODUCT USED FOR UNKNOWN INDICATION
     Dosage: UNK
     Route: 065
  13. ADEMPAS [Concomitant]
     Active Substance: RIOCIGUAT
  14. FLOLAN [Suspect]
     Active Substance: EPOPROSTENOL SODIUM
     Dosage: UNK
     Dates: start: 20100410
  15. FLOLAN [Suspect]
     Active Substance: EPOPROSTENOL SODIUM
     Dosage: 40.15 NG/KG/MIN
  16. FLOLAN [Suspect]
     Active Substance: EPOPROSTENOL SODIUM
     Dosage: 22 NG/KG/MIN, CO
     Route: 042
  17. FLOLAN [Suspect]
     Active Substance: EPOPROSTENOL SODIUM
     Dosage: 40.76 NG/KG/MIN CONTINUOUS
     Route: 042
     Dates: start: 20100409
  18. COUMADIN [Suspect]
     Active Substance: WARFARIN SODIUM
     Indication: PRODUCT USED FOR UNKNOWN INDICATION
     Dosage: UNK
  19. OPSUMIT [Suspect]
     Active Substance: MACITENTAN
     Indication: PRODUCT USED FOR UNKNOWN INDICATION
     Route: 065
  20. OPSUMIT [Concomitant]
     Active Substance: MACITENTAN
  21. FLOLAN [Suspect]
     Active Substance: EPOPROSTENOL SODIUM
     Dosage: 40.76 NG/KG/MIN, CONTINUOUSLY
     Dates: start: 20100409
  22. ADEMPAS [Suspect]
     Active Substance: RIOCIGUAT
     Dosage: 1 MG, UNK

REACTIONS (23)
  - Vomiting [Unknown]
  - Fluid overload [Unknown]
  - Haemoptysis [Unknown]
  - Catheter site swelling [Unknown]
  - Catheter site pain [Unknown]
  - Peripheral swelling [Unknown]
  - Fluid retention [Not Recovered/Not Resolved]
  - Abdominal distension [Unknown]
  - Pancreatic neoplasm [Unknown]
  - Therapeutic response decreased [Unknown]
  - Hypoxia [Unknown]
  - Catheter site erythema [Unknown]
  - Joint swelling [Unknown]
  - Nausea [Unknown]
  - Swelling [Not Recovered/Not Resolved]
  - Weight decreased [Unknown]
  - Oedema [Unknown]
  - Anaemia [Unknown]
  - Blood count abnormal [Unknown]
  - Hepatic neoplasm [Unknown]
  - Cardiac murmur [Unknown]
  - Dizziness [Unknown]
  - Hospitalisation [Unknown]

NARRATIVE: CASE EVENT DATE: 20160309
